FAERS Safety Report 7041886-4 (Version None)
Quarter: 2010Q4

REPORT INFORMATION
  Report Type: 
  Country: None (occurrence: None)
  Receive Date: 20101013
  Receipt Date: 20100507
  Transmission Date: 20110411
  Serious: No
  Sender: FDA-Public Use
  Company Number: US-ASTRAZENECA-2010SE21058

PATIENT
  Age: 70 Year
  Sex: Male
  Weight: 79.4 kg

DRUGS (4)
  1. SYMBICORT [Suspect]
     Indication: CHRONIC OBSTRUCTIVE PULMONARY DISEASE
     Dosage: 160/4.5 TWO PUFF
     Route: 055
     Dates: start: 20090401
  2. SYMBICORT [Suspect]
     Dosage: 160/4.5 ONE PUFF
     Route: 055
  3. METOPROLOL TARTRATE [Concomitant]
  4. ASPIRIN [Concomitant]

REACTIONS (2)
  - DYSPNOEA [None]
  - INCORRECT DOSE ADMINISTERED [None]
